FAERS Safety Report 4729573-6 (Version None)
Quarter: 2005Q3

REPORT INFORMATION
  Report Type: 
  Country: None (occurrence: None)
  Receive Date: 20050801
  Receipt Date: 20050719
  Transmission Date: 20060218
  Serious: Yes (Disabling)
  Sender: FDA-Public Use
  Company Number: GH-MERCK-0507USA02880

PATIENT
  Age: 65 Year
  Sex: Female

DRUGS (2)
  1. STROMECTOL [Suspect]
     Indication: FILARIASIS LYMPHATIC
     Route: 048
     Dates: start: 20050313, end: 20050313
  2. ALBENDAZOLE [Suspect]
     Indication: FILARIASIS LYMPHATIC
     Route: 048
     Dates: start: 20050313, end: 20050313

REACTIONS (2)
  - BLINDNESS UNILATERAL [None]
  - VISION BLURRED [None]
